FAERS Safety Report 12312873 (Version 1)
Quarter: 2016Q2

REPORT INFORMATION
  Report Type: Spontaneous
  Country: BR (occurrence: BR)
  Receive Date: 20160428
  Receipt Date: 20160428
  Transmission Date: 20160815
  Serious: Yes (Other)
  Sender: FDA-Public Use
  Company Number: BR-ROCHE-1748785

PATIENT
  Age: 80 Year
  Sex: Female

DRUGS (1)
  1. RIVOTRIL [Suspect]
     Active Substance: CLONAZEPAM
     Indication: DEPRESSION
     Dosage: BEFORE SLEEP
     Route: 065

REACTIONS (3)
  - Hip fracture [Not Recovered/Not Resolved]
  - Product packaging quantity issue [Unknown]
  - Femur fracture [Not Recovered/Not Resolved]
